FAERS Safety Report 7953201-X (Version None)
Quarter: 2011Q4

REPORT INFORMATION
  Report Type: 
  Country: None (occurrence: None)
  Receive Date: 20111201
  Receipt Date: 20111122
  Transmission Date: 20120403
  Serious: Yes (Other)
  Sender: FDA-Public Use
  Company Number: US-ASTRAZENECA-2011SE49236

PATIENT
  Age: 51 Year
  Sex: Female
  Weight: 71.2 kg

DRUGS (1)
  1. NEXIUM [Suspect]
     Route: 048
     Dates: start: 20080306, end: 20110706

REACTIONS (4)
  - MALAISE [None]
  - NAUSEA [None]
  - BREAST CANCER STAGE III [None]
  - DRUG DOSE OMISSION [None]
